FAERS Safety Report 5935187-2 (Version None)
Quarter: 2008Q4

REPORT INFORMATION
  Report Type: 
  Country: None (occurrence: None)
  Receive Date: 20081028
  Receipt Date: 20081015
  Transmission Date: 20090506
  Serious: Yes (Life-Threatening)
  Sender: FDA-Public Use
  Company Number: 2008AL011377

PATIENT
  Age: 84 Year
  Sex: Female

DRUGS (9)
  1. MELOXICAM [Suspect]
     Indication: ARTHRITIS
     Dosage: 7.5 MG BID PO
     Route: 048
     Dates: start: 20080709
  2. LISINOPRIL [Concomitant]
  3. LANSOPRAZOLE [Concomitant]
  4. XALATAN [Concomitant]
  5. ACETAMINOPHEN [Concomitant]
  6. FUROSEMIDE [Concomitant]
  7. ACETYLSALICYLIC ACID SRT [Concomitant]
  8. TIMOLOL [Concomitant]
  9. DOXAZOSIN MESYLATE [Concomitant]

REACTIONS (3)
  - ARTHRALGIA [None]
  - DIZZINESS [None]
  - TRANSIENT ISCHAEMIC ATTACK [None]
